FAERS Safety Report 4502708-6 (Version None)
Quarter: 2004Q4

REPORT INFORMATION
  Report Type: 
  Country: None (occurrence: None)
  Receive Date: 20041109
  Receipt Date: 20041025
  Transmission Date: 20050328
  Serious: Yes (Hospitalization)
  Sender: FDA-Public Use
  Company Number: ENTC2004-0203

PATIENT
  Age: 73 Year
  Sex: Male

DRUGS (2)
  1. STALEVO 100 [Suspect]
     Indication: PARKINSONISM
     Dosage: QID ORAL
     Route: 048
  2. MIRAPEX [Concomitant]

REACTIONS (1)
  - GASTRIC HAEMORRHAGE [None]
